FAERS Safety Report 8212240-4 (Version None)
Quarter: 2012Q1

REPORT INFORMATION
  Report Type: 
  Country: None (occurrence: None)
  Receive Date: 20120315
  Receipt Date: 20120308
  Transmission Date: 20120608
  Serious: Yes (Other)
  Sender: FDA-Public Use
  Company Number: JP-JNJFOC-20120304946

PATIENT
  Age: 26 Year
  Sex: Female

DRUGS (5)
  1. ITRACONAZOLE [Suspect]
     Indication: FUNGAL INFECTION
     Route: 048
  2. ITRACONAZOLE [Suspect]
     Route: 048
     Dates: start: 20071016
  3. MICAFUNGIN SODIUM [Concomitant]
     Route: 041
     Dates: start: 20070101, end: 20070101
  4. PROGRAF [Interacting]
     Route: 048
     Dates: start: 20070101
  5. PROGRAF [Interacting]
     Indication: PRODUCT USED FOR UNKNOWN INDICATION
     Route: 048

REACTIONS (3)
  - DIABETES MELLITUS [None]
  - IMMUNOSUPPRESSANT DRUG LEVEL INCREASED [None]
  - DRUG INTERACTION [None]
